FAERS Safety Report 6745659-9 (Version None)
Quarter: 2010Q2

REPORT INFORMATION
  Report Type: 
  Country: None (occurrence: None)
  Receive Date: 20100526
  Receipt Date: 20100512
  Transmission Date: 20101027
  Serious: Yes (Death)
  Sender: FDA-Public Use
  Company Number: 011897

PATIENT
  Age: 31 Year
  Sex: Male
  Weight: 92 kg

DRUGS (4)
  1. VIMPAT [Suspect]
     Indication: EPILEPSY
     Dosage: 50 MG QD ORAL
     Route: 048
     Dates: start: 20100318
  2. LAMOTRIGINE [Concomitant]
  3. RISPERIDONE [Concomitant]
  4. VALPROATE SODIUM [Concomitant]

REACTIONS (1)
  - SUDDEN DEATH [None]
